FAERS Safety Report 5064534-1 (Version None)
Quarter: 2006Q3

REPORT INFORMATION
  Report Type: 
  Country: None (occurrence: None)
  Receive Date: 20060728
  Receipt Date: 20060719
  Transmission Date: 20061208
  Serious: Yes (Hospitalization, Other)
  Sender: FDA-Public Use
  Company Number: US-ABBOTT-06P-163-0338345-00

PATIENT
  Sex: Female
  Weight: 109 kg

DRUGS (2)
  1. HUMIRA [Suspect]
     Indication: PSORIATIC ARTHROPATHY
     Route: 058
     Dates: start: 20020101, end: 20050501
  2. COUMADIN [Concomitant]
     Indication: HEART VALVE REPLACEMENT
     Dates: start: 19950101

REACTIONS (5)
  - ABDOMINAL PAIN [None]
  - DRUG LEVEL INCREASED [None]
  - LOSS OF CONSCIOUSNESS [None]
  - RENAL CELL CARCINOMA STAGE UNSPECIFIED [None]
  - RETROPERITONEAL HAEMORRHAGE [None]
